FAERS Safety Report 7211910-4 (Version None)
Quarter: 2011Q1

REPORT INFORMATION
  Report Type: 
  Country: None (occurrence: None)
  Receive Date: 20110106
  Receipt Date: 20101222
  Transmission Date: 20110831
  Serious: No
  Sender: FDA-Public Use
  Company Number: US-BIOGENIDEC-2010BI038179

PATIENT
  Sex: Female

DRUGS (1)
  1. TYSABRI [Suspect]
     Indication: MULTIPLE SCLEROSIS
     Route: 042
     Dates: start: 20080903, end: 20101013

REACTIONS (10)
  - LIBIDO DECREASED [None]
  - JOINT LOCK [None]
  - ARTHRALGIA [None]
  - PAIN IN EXTREMITY [None]
  - BACK PAIN [None]
  - VAGINAL DISCHARGE [None]
  - DYSURIA [None]
  - DECREASED APPETITE [None]
  - WEIGHT INCREASED [None]
  - ASTHENIA [None]
